FAERS Safety Report 7490996-6 (Version None)
Quarter: 2011Q2

REPORT INFORMATION
  Report Type: 
  Country: None (occurrence: None)
  Receive Date: 20110519
  Receipt Date: 20110508
  Transmission Date: 20111010
  Serious: Yes (Death)
  Sender: FDA-Public Use
  Company Number: NL-ACTELION-A-CH2011-48518

PATIENT
  Age: 62 Year
  Sex: Female
  Weight: 58 kg

DRUGS (1)
  1. TRACLEER [Suspect]
     Indication: SKIN ULCER
     Dosage: 125 MG, UNK
     Route: 048
     Dates: start: 20080516, end: 20081023

REACTIONS (3)
  - DEATH [None]
  - ARTHRALGIA [None]
  - DRUG INEFFECTIVE [None]
